FAERS Safety Report 18245489 (Version 1)
Quarter: 2020Q3

REPORT INFORMATION
  Report Type: Spontaneous
  Country: US (occurrence: US)
  Receive Date: 20200908
  Receipt Date: 20200908
  Transmission Date: 20201103
  Serious: Yes (Other)
  Sender: FDA-Public Use
  Company Number: None

PATIENT
  Age: 57 Year
  Sex: Female
  Weight: 90 kg

DRUGS (6)
  1. FLUOXETINE [Concomitant]
     Active Substance: FLUOXETINE HYDROCHLORIDE
  2. CLONAZEPAM. [Concomitant]
     Active Substance: CLONAZEPAM
  3. BARIATRIC VITAMINS [Concomitant]
  4. ELAVIL [Concomitant]
     Active Substance: AMITRIPTYLINE HYDROCHLORIDE
  5. LANSOPRAZOLE 30MB TIME?RELEASE [Suspect]
     Active Substance: LANSOPRAZOLE
     Indication: GASTROOESOPHAGEAL REFLUX DISEASE
     Route: 048
     Dates: start: 20200330, end: 20200904
  6. ROBAXIN [Concomitant]
     Active Substance: METHOCARBAMOL

REACTIONS (5)
  - Abdominal pain upper [None]
  - Product substitution issue [None]
  - Condition aggravated [None]
  - Feeding disorder [None]
  - Diarrhoea [None]

NARRATIVE: CASE EVENT DATE: 20200330
